FAERS Safety Report 8834787 (Version 1)
Quarter: 2012Q4

REPORT INFORMATION
  Report Type: Spontaneous
  Country: DK (occurrence: None)
  Receive Date: 20121009
  Receipt Date: 20121009
  Transmission Date: 20130627
  Serious: Yes (Disabling)
  Sender: FDA-Public Use
  Company Number: 2012MA011913

PATIENT
  Age: 68 Year
  Sex: Male

DRUGS (6)
  1. GABAPENTIN [Suspect]
     Indication: NEUROPATHY
     Route: 048
     Dates: start: 20120825
  2. LISINOPRIL [Concomitant]
  3. METFORMIN [Concomitant]
  4. GLICILAZIDE [Concomitant]
  5. SERETIDIE [Concomitant]
  6. SALBUTAMOL [Concomitant]

REACTIONS (4)
  - Erythema [None]
  - Feeling hot [None]
  - Palpitations [None]
  - Paraesthesia [None]
